FAERS Safety Report 4305328-1 (Version None)
Quarter: 2004Q1

REPORT INFORMATION
  Report Type: 
  Country: None (occurrence: None)
  Receive Date: 20040226
  Receipt Date: 20030520
  Transmission Date: 20041129
  Serious: No
  Sender: FDA-Public Use
  Company Number: US-BRISTOL-MYERS SQUIBB COMPANY-12280889

PATIENT
  Age: 32 Year
  Sex: Male
  Weight: 79 kg

DRUGS (7)
  1. TAXOL [Suspect]
     Indication: METASTATIC NEOPLASM
     Route: 042
     Dates: start: 20030507, end: 20030507
  2. CARBOPLATIN [Suspect]
     Indication: METASTATIC NEOPLASM
     Route: 042
     Dates: start: 20030507, end: 20030507
  3. DEXAMETHASONE [Concomitant]
     Indication: PREMEDICATION
     Dosage: 6-12 HOURS PRIOR TO TREATMENT WITH TAXOL
     Route: 048
  4. ANZEMET [Concomitant]
     Indication: PREMEDICATION
     Dosage: 1 HOUR PRIOR TO TAXOL
     Route: 048
  5. METOPROLOL [Concomitant]
  6. PROTONIX [Concomitant]
  7. ASPIRIN [Concomitant]

REACTIONS (4)
  - ARTHRALGIA [None]
  - HICCUPS [None]
  - RASH PAPULAR [None]
  - STOMATITIS [None]
